FAERS Safety Report 6303094-1 (Version None)
Quarter: 2009Q3

REPORT INFORMATION
  Report Type: 
  Country: None (occurrence: None)
  Receive Date: 20090810
  Receipt Date: 20090726
  Transmission Date: 20100115
  Serious: Yes (Other)
  Sender: FDA-Public Use
  Company Number: GB-ROCHE-647634

PATIENT
  Age: 29 Year
  Sex: Male

DRUGS (1)
  1. TAMIFLU [Suspect]
     Indication: INFLUENZA
     Route: 065

REACTIONS (7)
  - ABDOMINAL DISCOMFORT [None]
  - DEPRESSION [None]
  - DIZZINESS [None]
  - MOOD SWINGS [None]
  - PARANOIA [None]
  - SENSORY DISTURBANCE [None]
  - VISION BLURRED [None]
